FAERS Safety Report 25493398 (Version 1)
Quarter: 2025Q2

REPORT INFORMATION
  Report Type: Spontaneous
  Country: GB (occurrence: GB)
  Receive Date: 20250630
  Receipt Date: 20250630
  Transmission Date: 20250717
  Serious: Yes (Other)
  Sender: MYLAN
  Company Number: GB-MYLANLABS-2025M1053331

PATIENT
  Age: 79 Year
  Sex: Male

DRUGS (4)
  1. RIFAMPIN [Suspect]
     Active Substance: RIFAMPIN
     Indication: Joint tuberculosis
  2. ISONIAZID [Suspect]
     Active Substance: ISONIAZID
     Indication: Joint tuberculosis
  3. ETHAMBUTOL [Suspect]
     Active Substance: ETHAMBUTOL HYDROCHLORIDE
     Indication: Joint tuberculosis
  4. METHOTREXATE [Concomitant]
     Active Substance: METHOTREXATE
     Indication: Drug therapy

REACTIONS (1)
  - Drug ineffective [Unknown]
